FAERS Safety Report 12316888 (Version 2)
Quarter: 2016Q2

REPORT INFORMATION
  Report Type: Spontaneous
  Country: PL (occurrence: PL)
  Receive Date: 20160429
  Receipt Date: 20160602
  Transmission Date: 20160815
  Serious: Yes (Hospitalization, Other)
  Sender: FDA-Public Use
  Company Number: PL-009507513-1604POL003665

PATIENT
  Age: 20 Month
  Sex: Female

DRUGS (7)
  1. NASONEX [Suspect]
     Active Substance: MOMETASONE FUROATE
     Indication: WHEEZING
  2. NASONEX [Suspect]
     Active Substance: MOMETASONE FUROATE
     Indication: NASAL CONGESTION
  3. NASONEX [Suspect]
     Active Substance: MOMETASONE FUROATE
     Indication: HYPERSENSITIVITY
  4. CLEMASTINE [Concomitant]
     Active Substance: CLEMASTINE
     Dosage: UNK
     Dates: start: 20160328
  5. DEBRIDAT [Concomitant]
     Active Substance: TRIMEBUTINE MALEATE
     Indication: CONSTIPATION
     Dosage: 3 ML, 3 TIMES A DAY
     Dates: start: 20160325
  6. NASONEX [Suspect]
     Active Substance: MOMETASONE FUROATE
     Indication: SNORING
     Dosage: 1 DOSE OVERNIGHT INTO EACH NOSTRIL
     Route: 045
     Dates: start: 20160315, end: 20160418
  7. AERIUS [Concomitant]
     Active Substance: DESLORATADINE
     Dosage: 1X 2.5 ML
     Route: 048
     Dates: start: 20160315

REACTIONS (5)
  - Rotavirus infection [Unknown]
  - Varicella [Recovered/Resolved]
  - Drug administered to patient of inappropriate age [Unknown]
  - Drug ineffective [Unknown]
  - Pneumonia [Unknown]

NARRATIVE: CASE EVENT DATE: 20160315
